FAERS Safety Report 18339818 (Version 1)
Quarter: 2020Q4

REPORT INFORMATION
  Report Type: Spontaneous
  Country: AU (occurrence: AU)
  Receive Date: 20201002
  Receipt Date: 20201002
  Transmission Date: 20210113
  Serious: Yes (Other)
  Sender: FDA-Public Use
  Company Number: AU-BAYER-2020-207351

PATIENT
  Age: 48 Year
  Sex: Female

DRUGS (1)
  1. NEXAVAR [Suspect]
     Active Substance: SORAFENIB
     Indication: SOLITARY FIBROUS TUMOUR
     Dosage: LASTED ONLY LESS THAN A MONTH ON A LOW DOSE

REACTIONS (4)
  - Product use in unapproved indication [None]
  - Nausea [None]
  - Off label use [None]
  - Hypoglycaemia [None]
